FAERS Safety Report 5807246-6 (Version None)
Quarter: 2008Q3

REPORT INFORMATION
  Report Type: 
  Country: None (occurrence: None)
  Receive Date: 20080711
  Receipt Date: 20080708
  Transmission Date: 20090109
  Serious: Yes (Life-Threatening)
  Sender: FDA-Public Use
  Company Number: JP-ASTRAZENECA-2008AP04068

PATIENT
  Age: 30 Year
  Sex: Male

DRUGS (1)
  1. OMEPRAL [Suspect]
     Indication: GASTRIC ULCER
     Dosage: DOSE UNKNOWN
     Route: 048
     Dates: start: 20071201

REACTIONS (2)
  - BLOOD BILIRUBIN INCREASED [None]
  - VANISHING BILE DUCT SYNDROME [None]
